FAERS Safety Report 8211729-1 (Version None)
Quarter: 2012Q1

REPORT INFORMATION
  Report Type: 
  Country: None (occurrence: None)
  Receive Date: 20120315
  Receipt Date: 20120306
  Transmission Date: 20120608
  Serious: Yes (Other)
  Sender: FDA-Public Use
  Company Number: CA-JNJFOC-20120303819

PATIENT
  Sex: Male

DRUGS (12)
  1. METHOTREXATE [Concomitant]
     Indication: PSORIATIC ARTHROPATHY
     Route: 048
  2. MODULON [Concomitant]
     Indication: GASTROINTESTINAL DISORDER
     Route: 065
  3. INDAPAMIDE [Concomitant]
     Indication: HYPERTENSION
     Route: 065
  4. COLCHICINE [Concomitant]
     Indication: GOUT
     Route: 065
  5. ALLOPURINOL [Concomitant]
     Indication: GOUT
     Route: 065
  6. FOLIC ACID [Concomitant]
     Route: 065
  7. REMICADE [Suspect]
     Dosage: 39 TH INFUSION
     Route: 042
     Dates: start: 20120116
  8. REMICADE [Suspect]
     Indication: PSORIATIC ARTHROPATHY
     Dosage: 40 TH INFUSION
     Route: 042
     Dates: start: 20120306
  9. REMICADE [Suspect]
     Route: 042
     Dates: start: 20061206
  10. PRILOSEC [Concomitant]
     Route: 065
  11. OLMESARTAN MEDOXOMIL [Concomitant]
     Indication: HYPERTENSION
     Route: 065
  12. DILTIAZEM HCL [Concomitant]
     Route: 065

REACTIONS (3)
  - ROAD TRAFFIC ACCIDENT [None]
  - BACK PAIN [None]
  - MUSCLE SPASMS [None]
